FAERS Safety Report 9267513 (Version 1)
Quarter: 2013Q2

REPORT INFORMATION
  Report Type: Spontaneous
  Country: SE (occurrence: SE)
  Receive Date: 20130502
  Receipt Date: 20130502
  Transmission Date: 20140414
  Serious: Yes (Life-Threatening, Hospitalization, Disabling)
  Sender: FDA-Public Use
  Company Number: SE-009507513-1304SWE015434

PATIENT
  Age: 50 Year
  Sex: Male

DRUGS (4)
  1. REBETOL [Suspect]
     Dosage: 200 MG, TID
     Route: 048
     Dates: start: 201105, end: 201108
  2. INTERFERON ALFA-2B [Suspect]
  3. METADON [Concomitant]
  4. LERGIGAN [Concomitant]

REACTIONS (8)
  - Decreased appetite [Recovered/Resolved]
  - Gait disturbance [Recovered/Resolved]
  - Nausea [Recovered/Resolved]
  - Thrombosis [Recovered/Resolved]
  - Fatigue [Recovered/Resolved]
  - Weight decreased [Recovered/Resolved]
  - Wound infection [Recovered/Resolved]
  - Skin ulcer [Recovered/Resolved]
